FAERS Safety Report 19099441 (Version 2)
Quarter: 2021Q2

REPORT INFORMATION
  Report Type: Report from Study
  Country: US (occurrence: US)
  Receive Date: 20210406
  Receipt Date: 20210517
  Transmission Date: 20210717
  Serious: Yes (Death, Hospitalization)
  Sender: FDA-Public Use
  Company Number: US-SEATTLE GENETICS-2021SGN01743

PATIENT
  Sex: Female

DRUGS (2)
  1. TUCATINIB [Suspect]
     Active Substance: TUCATINIB
     Indication: PRODUCT USED FOR UNKNOWN INDICATION
     Dosage: 150 MG
     Route: 048
  2. TUCATINIB [Suspect]
     Active Substance: TUCATINIB
     Dosage: 50 MG

REACTIONS (6)
  - Lethargy [Unknown]
  - Hospitalisation [Unknown]
  - Decreased appetite [Unknown]
  - Nausea [Unknown]
  - Disease progression [Fatal]
  - Diarrhoea [Unknown]
